FAERS Safety Report 25255941 (Version 1)
Quarter: 2025Q2

REPORT INFORMATION
  Report Type: Spontaneous
  Country: US (occurrence: US)
  Receive Date: 20250430
  Receipt Date: 20250430
  Transmission Date: 20250716
  Serious: Yes (Hospitalization, Other)
  Sender: OXFORD PHARMACEUTICALS, LLC
  Company Number: US-Oxford Pharmaceuticals, LLC-2175896

PATIENT
  Age: 22 Year
  Sex: Male

DRUGS (6)
  1. METHOCARBAMOL [Suspect]
     Active Substance: METHOCARBAMOL
     Indication: Stiff person syndrome
  2. BACLOFEN [Suspect]
     Active Substance: BACLOFEN
  3. ACETAMINOPHEN [Suspect]
     Active Substance: ACETAMINOPHEN
  4. KETAMINE [Suspect]
     Active Substance: KETAMINE
  5. DIAZEPAM [Suspect]
     Active Substance: DIAZEPAM
  6. CYCLOBENZAPRINE [Suspect]
     Active Substance: CYCLOBENZAPRINE

REACTIONS (2)
  - Condition aggravated [Unknown]
  - Drug ineffective [Unknown]
